FAERS Safety Report 5623883-6 (Version None)
Quarter: 2008Q1

REPORT INFORMATION
  Report Type: 
  Country: None (occurrence: None)
  Receive Date: 20080207
  Receipt Date: 20080123
  Transmission Date: 20080703
  Serious: No
  Sender: FDA-Public Use
  Company Number: 8029573

PATIENT
  Age: 8 Year
  Sex: Female
  Weight: 25.9 kg

DRUGS (2)
  1. METHYLPHENIDATE HCL [Suspect]
     Dosage: 20 MG 1/D;
     Dates: start: 20070509
  2. METHYLPHENIDATE HCL [Suspect]
     Dosage: 30 MG 1/D;

REACTIONS (5)
  - DECREASED APPETITE [None]
  - ONYCHOPHAGIA [None]
  - SLEEP DISORDER [None]
  - SOCIAL AVOIDANT BEHAVIOUR [None]
  - TIC [None]
